FAERS Safety Report 21459637 (Version 1)
Quarter: 2022Q4

REPORT INFORMATION
  Report Type: Spontaneous
  Country: US (occurrence: US)
  Receive Date: 20221014
  Receipt Date: 20221014
  Transmission Date: 20230113
  Serious: Yes (Other)
  Sender: FDA-Public Use
  Company Number: US-ELI_LILLY_AND_COMPANY-US202210003412

PATIENT
  Age: 71 Year
  Sex: Female

DRUGS (4)
  1. INSULIN LISPRO [Suspect]
     Active Substance: INSULIN LISPRO
     Indication: Diabetes mellitus
     Dosage: 32 U, PRN (3 TO 4 TIMES A DAY)
     Route: 065
     Dates: start: 2021
  2. INSULIN LISPRO [Suspect]
     Active Substance: INSULIN LISPRO
     Dosage: 32 U, PRN (3 TO 4 TIMES A DAY)
     Route: 065
     Dates: start: 2021
  3. LEVEMIR [Concomitant]
     Active Substance: INSULIN DETEMIR
     Indication: Diabetes mellitus
  4. FARXIGA [Concomitant]
     Active Substance: DAPAGLIFLOZIN PROPANEDIOL
     Indication: Diabetes mellitus

REACTIONS (4)
  - Heart rate decreased [Unknown]
  - Chronic kidney disease [Unknown]
  - Benign renal neoplasm [Unknown]
  - Dizziness [Unknown]

NARRATIVE: CASE EVENT DATE: 20220930
